FAERS Safety Report 22155168 (Version 1)
Quarter: 2023Q1

REPORT INFORMATION
  Report Type: Spontaneous
  Country: US (occurrence: None)
  Receive Date: 20230329
  Receipt Date: 20230329
  Transmission Date: 20230417
  Serious: No
  Sender: FDA-Public Use
  Company Number: None

PATIENT
  Sex: Male

DRUGS (1)
  1. DIMETHYL FUMARATE [Suspect]
     Active Substance: DIMETHYL FUMARATE
     Dosage: 240MG BID ORAL?
     Route: 048

REACTIONS (6)
  - Diarrhoea [None]
  - Facial paresis [None]
  - Facial paralysis [None]
  - Drooling [None]
  - Balance disorder [None]
  - Tremor [None]
